FAERS Safety Report 16110108 (Version 1)
Quarter: 2019Q1

REPORT INFORMATION
  Report Type: Spontaneous
  Country: RO (occurrence: RO)
  Receive Date: 20190325
  Receipt Date: 20190325
  Transmission Date: 20190418
  Serious: Yes (Hospitalization, Other)
  Sender: FDA-Public Use
  Company Number: RO-ACCORD-114268

PATIENT
  Age: 35 Year
  Sex: Male

DRUGS (3)
  1. AMISULPRIDE [Suspect]
     Active Substance: AMISULPRIDE
     Indication: PRODUCT USED FOR UNKNOWN INDICATION
     Dosage: 400 MG, QD
  2. CLOZAPINE. [Suspect]
     Active Substance: CLOZAPINE
     Indication: PSYCHOTIC DISORDER
     Dosage: 500 MG, DAILY, DRUG DOSE DECREASED TO 100 MG/DAY,ALSO RECEIVED 500 MG
  3. CLOZAPINE. [Suspect]
     Active Substance: CLOZAPINE
     Indication: PSYCHOTIC DISORDER
     Dosage: 500 MG, QD

REACTIONS (4)
  - Suspiciousness [Recovering/Resolving]
  - Delusional perception [Recovering/Resolving]
  - Extrapyramidal disorder [Recovering/Resolving]
  - Abnormal behaviour [Unknown]
